FAERS Safety Report 19037297 (Version 1)
Quarter: 2021Q1

REPORT INFORMATION
  Report Type: Spontaneous
  Country: US (occurrence: US)
  Receive Date: 20210322
  Receipt Date: 20210322
  Transmission Date: 20210420
  Serious: No
  Sender: FDA-Public Use
  Company Number: US-ITALFARMACO SPA-2108265

PATIENT
  Age: 73 Year
  Sex: Female

DRUGS (4)
  1. TIGLUTIK [Suspect]
     Active Substance: RILUZOLE
     Indication: AMYOTROPHIC LATERAL SCLEROSIS
     Dates: start: 20210112, end: 20210223
  2. LEXAPRO [Concomitant]
     Active Substance: ESCITALOPRAM OXALATE
  3. LOSARTAN. [Concomitant]
     Active Substance: LOSARTAN
  4. SCOPOLAMINE HYDROBROMIDE. [Concomitant]
     Active Substance: SCOPOLAMINE HYDROBROMIDE

REACTIONS (2)
  - Trismus [Recovered/Resolved]
  - Musculoskeletal stiffness [Recovered/Resolved]
